FAERS Safety Report 6645081-X (Version None)
Quarter: 2010Q1

REPORT INFORMATION
  Report Type: 
  Country: None (occurrence: None)
  Receive Date: 20100322
  Receipt Date: 20100312
  Transmission Date: 20100710
  Serious: Yes (Other)
  Sender: FDA-Public Use
  Company Number: KZ-ABBOTT-10P-230-0632216-00

PATIENT
  Age: 57 Year
  Sex: Male

DRUGS (3)
  1. DEPAKENE [Suspect]
     Indication: EPILEPSY
     Dosage: 150MG DAILY
     Route: 048
     Dates: start: 20091228, end: 20100121
  2. DEPAKENE [Suspect]
     Dosage: 150MG DAILY
     Route: 048
  3. DEPAKENE [Suspect]
     Dosage: TABLETS FROM ANOTHER BATCH

REACTIONS (3)
  - CONVULSION [None]
  - DRUG INEFFECTIVE [None]
  - PRODUCT QUALITY ISSUE [None]
